FAERS Safety Report 9848086 (Version 1)
Quarter: 2013Q4

REPORT INFORMATION
  Report Type: Spontaneous
  Country: US (occurrence: None)
  Receive Date: 20131202
  Receipt Date: 20131202
  Transmission Date: 20140711
  Serious: Yes (Hospitalization)
  Sender: FDA-Public Use
  Company Number: KAMADA LTD MFR # 39727

PATIENT
  Age: 64 Year
  Sex: Male

DRUGS (2)
  1. GLASSIA [Suspect]
     Indication: ALPHA-1 ANTI-TRYPSIN DEFICIENCY
     Dosage: 6000MG +/-10% WEEKLY IV
     Route: 042
     Dates: start: 20121029
  2. UNSPECIFIED ANTI-HYPERTENSION MEDICATIONS [Concomitant]

REACTIONS (2)
  - Headache [None]
  - Hypertension [None]
